FAERS Safety Report 6841696-4 (Version None)
Quarter: 2010Q3

REPORT INFORMATION
  Report Type: 
  Country: None (occurrence: None)
  Receive Date: 20100714
  Receipt Date: 20070713
  Transmission Date: 20110219
  Serious: No
  Sender: FDA-Public Use
  Company Number: US-PFIZER INC-2007058898

PATIENT
  Sex: Male
  Weight: 70.9 kg

DRUGS (10)
  1. CHANTIX [Suspect]
     Indication: SMOKING CESSATION THERAPY
     Dates: start: 20070709
  2. ATENOLOL [Concomitant]
     Indication: HYPERTENSION
  3. HYDROCHLOROTHIAZIDE [Concomitant]
     Indication: HYPERTENSION
  4. LISINOPRIL [Concomitant]
     Indication: HYPERTENSION
  5. GEMFIBROZIL [Concomitant]
     Indication: BLOOD CHOLESTEROL INCREASED
  6. COMBIVENT [Concomitant]
  7. VICODIN [Concomitant]
  8. DIAZEPAM [Concomitant]
  9. TRIAZOLAM [Concomitant]
     Dosage: PRN
  10. NICOTINE [Concomitant]
     Indication: SMOKING CESSATION THERAPY

REACTIONS (1)
  - PALPITATIONS [None]
